FAERS Safety Report 4473936-3 (Version None)
Quarter: 2004Q4

REPORT INFORMATION
  Report Type: 
  Country: None (occurrence: None)
  Receive Date: 20041013
  Receipt Date: 20040930
  Transmission Date: 20050328
  Serious: Yes (Other)
  Sender: FDA-Public Use
  Company Number: 2004071923

PATIENT
  Sex: Female
  Weight: 54.4316 kg

DRUGS (4)
  1. VISINE TEARS PRESERVATIVE FREE (GLYCERIN, HYDROXYPROPYLMETHYLCELLULOSE [Suspect]
     Indication: POSTOPERATIVE CARE
     Dosage: A SINGLE USE EVERY HOUR, OPTHALMIC
     Route: 047
  2. DIGOXIN [Concomitant]
  3. LEVOTHYROXINE SODIUM [Concomitant]
  4. CYANOCOBALAMIN (CYANOCOBALAMIN) [Concomitant]

REACTIONS (1)
  - CATARACT [None]
